FAERS Safety Report 17726299 (Version 4)
Quarter: 2020Q2

REPORT INFORMATION
  Report Type: Spontaneous
  Country: BE (occurrence: BE)
  Receive Date: 20200429
  Receipt Date: 20200512
  Transmission Date: 20200714
  Serious: Yes (Hospitalization, Other)
  Sender: FDA-Public Use
  Company Number: BE-CELLTRION INC.-2020BE018287

PATIENT

DRUGS (3)
  1. INFLIXIMAB (UNKNOWN) [Suspect]
     Active Substance: INFLIXIMAB
     Indication: INFLAMMATORY BOWEL DISEASE
     Dosage: UNKNOWN
     Route: 065
  2. INFLIXIMAB (UNKNOWN) [Suspect]
     Active Substance: INFLIXIMAB
     Indication: ANKYLOSING SPONDYLITIS
     Dosage: 290 MG EVERY 8 WEEKS
     Route: 042
  3. INFLIXIMAB (UNKNOWN) [Suspect]
     Active Substance: INFLIXIMAB
     Dosage: 290 MG, (SINCE 1 YEAR, EVERY EIGHT WEEKS)

REACTIONS (6)
  - Inflammation [Unknown]
  - Immunosuppression [Recovered/Resolved]
  - Malaria [Recovered/Resolved]
  - Hyperbilirubinaemia [Unknown]
  - Plasmodium falciparum infection [Recovered/Resolved]
  - Thrombocytopenia [Unknown]
